FAERS Safety Report 24755159 (Version 1)
Quarter: 2024Q4

REPORT INFORMATION
  Report Type: Spontaneous
  Country: IT (occurrence: IT)
  Receive Date: 20241219
  Receipt Date: 20241219
  Transmission Date: 20250114
  Serious: Yes (Other)
  Sender: ABBVIE
  Company Number: None

PATIENT
  Age: 82 Year
  Sex: Female
  Weight: 55 kg

DRUGS (1)
  1. COMBIGAN [Suspect]
     Active Substance: BRIMONIDINE TARTRATE\TIMOLOL MALEATE
     Indication: Product used for unknown indication
     Dosage: 1 DROP TWICE A DAY IN BOTH EYES
     Route: 047

REACTIONS (1)
  - Uveitis [Recovered/Resolved]

NARRATIVE: CASE EVENT DATE: 20231204
